FAERS Safety Report 7570139-0 (Version None)
Quarter: 2011Q2

REPORT INFORMATION
  Report Type: 
  Country: None (occurrence: None)
  Receive Date: 20110624
  Receipt Date: 20110610
  Transmission Date: 20111010
  Serious: Yes (Other)
  Sender: FDA-Public Use
  Company Number: CA-JNJFOC-20110312021

PATIENT
  Sex: Male
  Weight: 64 kg

DRUGS (9)
  1. AMITRIPTYLINE HCL [Concomitant]
     Route: 048
  2. ZOPICLONE [Concomitant]
     Dosage: AT BED TIME
     Route: 065
  3. REMICADE [Suspect]
     Indication: CROHN'S DISEASE
     Route: 042
     Dates: start: 20110318
  4. IMURAN [Concomitant]
     Route: 048
  5. REMICADE [Suspect]
     Route: 042
     Dates: start: 20110428
  6. CESAMET [Concomitant]
     Dosage: 0.5 MG AM AND 1.0 MG PM
     Route: 065
  7. LYRICA [Concomitant]
     Dosage: AT BED TIME
     Route: 065
  8. CODEINE [Concomitant]
     Dosage: 30 MG FOR BREAKTHROUGH PAIN
     Route: 065
  9. OXYCODONE HCL [Concomitant]
     Route: 065

REACTIONS (5)
  - HEPATIC ENZYME INCREASED [None]
  - DIARRHOEA [None]
  - VOMITING [None]
  - INFLUENZA [None]
  - WEIGHT DECREASED [None]
